FAERS Safety Report 21526147 (Version 1)
Quarter: 2022Q4

REPORT INFORMATION
  Report Type: Spontaneous
  Country: CN (occurrence: CN)
  Receive Date: 20221031
  Receipt Date: 20221031
  Transmission Date: 20230113
  Serious: Yes (Other)
  Sender: FDA-Public Use
  Company Number: None

PATIENT
  Age: 75 Year
  Sex: Male
  Weight: 60 kg

DRUGS (10)
  1. CYCLOPHOSPHAMIDE [Suspect]
     Active Substance: CYCLOPHOSPHAMIDE
     Indication: Diffuse large B-cell lymphoma
     Dosage: 0.6 G, D-1, QD DILUTED WITH (250 ML OF SODIUM CHLORIDE INJECTION), CHOP REGIMEN
     Route: 041
     Dates: start: 20220705, end: 20220705
  2. CYCLOPHOSPHAMIDE [Suspect]
     Active Substance: CYCLOPHOSPHAMIDE
     Indication: Lymphoma
  3. SODIUM CHLORIDE [Suspect]
     Active Substance: SODIUM CHLORIDE
     Indication: Medication dilution
     Dosage: 250 ML, D-1, QD, USED TO DILUTE 0.6 G OF CYCLOPHOSPHAMIDE INJECTION, CHOP REGIMEN
     Route: 041
     Dates: start: 20220705, end: 20220705
  4. SODIUM CHLORIDE [Suspect]
     Active Substance: SODIUM CHLORIDE
     Dosage: 20 ML, D-1, QD, USED TO DILUTE 3 MG OF VINDESINE SULFATE INJECTION, CHOP REGIMEN
     Route: 042
     Dates: start: 20220705, end: 20220705
  5. DEXTROSE MONOHYDRATE [Suspect]
     Active Substance: DEXTROSE MONOHYDRATE
     Indication: Medication dilution
     Dosage: 250 ML, D-1, QD, USED TO DILUTE 20 MG OF LIPOSOME DOXORUBICIN HYDROCHLORIDE INJECTION, CHOP REGIMEN
     Route: 041
     Dates: start: 20220705, end: 20220705
  6. VINDESINE SULFATE [Suspect]
     Active Substance: VINDESINE SULFATE
     Indication: Diffuse large B-cell lymphoma
     Dosage: 3 MG, D-1, QD, DILUTED WITH (20 ML OF SODIUM CHLORIDE INJECTION), CHOP REGIMEN
     Route: 042
     Dates: start: 20220705, end: 20220705
  7. VINDESINE SULFATE [Suspect]
     Active Substance: VINDESINE SULFATE
     Indication: Lymphoma
  8. DOXORUBICIN HYDROCHLORIDE [Suspect]
     Active Substance: DOXORUBICIN HYDROCHLORIDE
     Indication: Diffuse large B-cell lymphoma
     Dosage: 20 MG, D-1, QD DILUTED WITH (250 ML OF 5% GLUCOSE INJECTION), CHOP REGIMEN
     Route: 041
     Dates: start: 20220705, end: 20220705
  9. DOXORUBICIN HYDROCHLORIDE [Suspect]
     Active Substance: DOXORUBICIN HYDROCHLORIDE
     Indication: Lymphoma
  10. DEXAMETHASONE [Suspect]
     Active Substance: DEXAMETHASONE
     Indication: Diffuse large B-cell lymphoma
     Dosage: 10 MG, D1-5, CHOP REGIMEN
     Route: 065
     Dates: start: 20220705, end: 20220709

REACTIONS (1)
  - Myelosuppression [Recovering/Resolving]

NARRATIVE: CASE EVENT DATE: 20220707
